FAERS Safety Report 7312329-8 (Version None)
Quarter: 2011Q1

REPORT INFORMATION
  Report Type: 
  Country: None (occurrence: None)
  Receive Date: 20110224
  Receipt Date: 20110209
  Transmission Date: 20110831
  Serious: Yes (Hospitalization)
  Sender: FDA-Public Use
  Company Number: TW-CELGENEUS-153-C5013-11021116

PATIENT
  Sex: Female
  Weight: 63 kg

DRUGS (17)
  1. SOLU-CORTEF [Concomitant]
     Indication: PROPHYLAXIS
     Route: 051
     Dates: start: 20110128, end: 20110128
  2. SODIUM CHLORIDE 0.9% [Concomitant]
     Route: 051
     Dates: start: 20110128, end: 20110128
  3. CC-5013 [Suspect]
     Indication: MULTIPLE MYELOMA
     Route: 048
     Dates: start: 20101213
  4. DEXAMETHASONE [Suspect]
     Indication: MULTIPLE MYELOMA
     Route: 065
     Dates: start: 20101213
  5. VENAN [Concomitant]
  6. DEXAMETHASONE [Suspect]
     Route: 065
     Dates: start: 20110114, end: 20110211
  7. MAGEST ORAL SUSPENSION [Concomitant]
     Route: 048
     Dates: start: 20101231, end: 20110114
  8. ZOMETA [Concomitant]
     Indication: BONE PAIN
     Route: 051
     Dates: start: 20101231
  9. VENAN [Concomitant]
     Indication: TRANSFUSION
     Route: 051
     Dates: start: 20110128, end: 20110128
  10. INDOMETHACIN CREAM [Concomitant]
     Indication: BONE PAIN
     Route: 061
     Dates: start: 20110214
  11. CC-5013 [Suspect]
     Route: 048
     Dates: start: 20110114, end: 20110211
  12. PROMETIN [Concomitant]
     Route: 048
     Dates: start: 20101231, end: 20101231
  13. DURAGESIC-100 [Concomitant]
     Indication: BONE PAIN
     Route: 062
     Dates: start: 20110114
  14. NORVASC [Concomitant]
     Indication: HYPERTENSION
     Route: 048
     Dates: start: 20110114
  15. CIPROFLOXACIN [Concomitant]
     Indication: INFECTION
     Route: 065
  16. LACTULOSE LIQUID [Concomitant]
     Indication: CONSTIPATION
     Route: 048
     Dates: start: 20101231, end: 20110114
  17. SODIUM CHLORIDE 0.9% [Concomitant]
     Indication: DRUG THERAPY
     Route: 051
     Dates: start: 20101231, end: 20101231

REACTIONS (3)
  - MULTIPLE MYELOMA [None]
  - PARKINSONISM [None]
  - BONE PAIN [None]
